FAERS Safety Report 4807432-8 (Version None)
Quarter: 2005Q4

REPORT INFORMATION
  Report Type: 
  Country: None (occurrence: None)
  Receive Date: 20051020
  Receipt Date: 20051006
  Transmission Date: 20060501
  Serious: Yes (Hospitalization)
  Sender: FDA-Public Use
  Company Number: 2005BI014931

PATIENT
  Age: 46 Year
  Sex: Female
  Weight: 97.5234 kg

DRUGS (18)
  1. AVONEX LIQUID [Suspect]
     Indication: MULTIPLE SCLEROSIS
     Dosage: 30 UG; QW; IM
     Route: 030
     Dates: start: 20050328, end: 20050418
  2. AVONEX LYOPHILIZED [Suspect]
     Dosage: 7.5 UG; QW; IM; 15 UG; QW; IM; 22.5 UG; QW; IM
     Route: 030
     Dates: start: 20050101, end: 20050101
  3. AVONEX LYOPHILIZED [Suspect]
     Dosage: 7.5 UG; QW; IM; 15 UG; QW; IM; 22.5 UG; QW; IM
     Route: 030
     Dates: start: 20050516, end: 20050101
  4. AVONEX LYOPHILIZED [Suspect]
     Dosage: 7.5 UG; QW; IM; 15 UG; QW; IM; 22.5 UG; QW; IM
     Route: 030
     Dates: start: 20050101, end: 20050721
  5. AVONEX LYOPHILIZED [Suspect]
     Indication: MULTIPLE SCLEROSIS
     Dosage: 30 UG; QW; IM
     Route: 030
     Dates: start: 20050728, end: 20050101
  6. LOTENSIN [Concomitant]
  7. VASOTEC [Concomitant]
  8. ESTRADIOL [Concomitant]
  9. MOTRIN [Concomitant]
  10. MULTI-VITAMIN [Concomitant]
  11. ASCORBIC ACID [Concomitant]
  12. FLAXSEED OIL [Concomitant]
  13. LYSINE [Concomitant]
  14. CRANBERRY [Concomitant]
  15. CALCIUM WITH VITAMIN D [Concomitant]
  16. VITAMIN B COMPLEX CAP [Concomitant]
  17. ALPRAZOLAM [Concomitant]
  18. MSM [Concomitant]

REACTIONS (11)
  - ABDOMINAL DISTENSION [None]
  - ABNORMAL DREAMS [None]
  - ARTERITIS [None]
  - BREAST TENDERNESS [None]
  - CORONARY ARTERY OCCLUSION [None]
  - DEPRESSION [None]
  - EYE IRRITATION [None]
  - INFLAMMATION [None]
  - MYOCARDIAL INFARCTION [None]
  - SCAR [None]
  - SUICIDAL IDEATION [None]
